FAERS Safety Report 5250731-9 (Version None)
Quarter: 2007Q1

REPORT INFORMATION
  Report Type: 
  Country: None (occurrence: None)
  Receive Date: 20070228
  Receipt Date: 20060626
  Transmission Date: 20070707
  Serious: Yes (Other)
  Sender: FDA-Public Use
  Company Number: US-GLAXOSMITHKLINE-A0610528A

PATIENT

DRUGS (2)
  1. LAMICTAL [Suspect]
     Indication: PARTIAL SEIZURES
     Route: 048
  2. LAMOTRIGINE [Suspect]
     Indication: PARTIAL SEIZURES
     Route: 048

REACTIONS (2)
  - ADVERSE EVENT [None]
  - CONVULSION [None]
